FAERS Safety Report 17441107 (Version 1)
Quarter: 2020Q1

REPORT INFORMATION
  Report Type: Spontaneous
  Country: CH (occurrence: CH)
  Receive Date: 20200220
  Receipt Date: 20200220
  Transmission Date: 20200409
  Serious: Yes (Hospitalization, Other)
  Sender: FDA-Public Use
  Company Number: CH-ASTRAZENECA-2020SE20727

PATIENT
  Age: 24369 Day
  Sex: Male

DRUGS (8)
  1. BACTRIM [Suspect]
     Active Substance: SULFAMETHOXAZOLE\TRIMETHOPRIM
     Dosage: 800/160 MG
     Route: 048
     Dates: start: 202001, end: 20200115
  2. MABTHERA [Suspect]
     Active Substance: RITUXIMAB
     Dosage: 724.0MG UNKNOWN
     Route: 042
     Dates: start: 20200109, end: 20200109
  3. NEXIUM [Suspect]
     Active Substance: ESOMEPRAZOLE MAGNESIUM
     Dosage: 40.0MG UNKNOWN
     Route: 048
     Dates: start: 20200109, end: 20200115
  4. ZYLORIC [Suspect]
     Active Substance: ALLOPURINOL
     Dosage: 300.0MG UNKNOWN
     Route: 048
     Dates: start: 20200109, end: 20200115
  5. VALTREX [Suspect]
     Active Substance: VALACYCLOVIR HYDROCHLORIDE
     Dosage: 500.0MG UNKNOWN
     Route: 048
     Dates: start: 20200109, end: 20200115
  6. METHOTREXATE. [Suspect]
     Active Substance: METHOTREXATE
     Dosage: 6755.0MG UNKNOWN
     Route: 042
     Dates: start: 20200109
  7. CYTOSAR [Suspect]
     Active Substance: CYTARABINE
     Route: 042
     Dates: start: 20200110, end: 20200111
  8. TEPADINA [Suspect]
     Active Substance: THIOTEPA
     Dosage: 58.0MG UNKNOWN
     Route: 042
     Dates: start: 20200112, end: 20200112

REACTIONS (5)
  - Petechiae [Recovering/Resolving]
  - Rash macular [Recovering/Resolving]
  - Febrile neutropenia [Recovering/Resolving]
  - Agranulocytosis [Recovering/Resolving]
  - Pancytopenia [Recovering/Resolving]

NARRATIVE: CASE EVENT DATE: 20200115
